FAERS Safety Report 13026263 (Version 1)
Quarter: 2016Q4

REPORT INFORMATION
  Report Type: Spontaneous
  Country: US (occurrence: US)
  Receive Date: 20161214
  Receipt Date: 20161214
  Transmission Date: 20170207
  Serious: Yes (Death, Hospitalization)
  Sender: FDA-Public Use
  Company Number: US-JNJFOC-20161205700

PATIENT
  Age: 10 Year
  Sex: Male

DRUGS (1)
  1. BENADRYL [Suspect]
     Active Substance: DIPHENHYDRAMINE HYDROCHLORIDE
     Indication: FOOD ALLERGY
     Route: 048

REACTIONS (6)
  - Dyspnoea [Unknown]
  - Skin discolouration [Unknown]
  - Malaise [Unknown]
  - Death [Fatal]
  - Vomiting [Unknown]
  - Loss of consciousness [Unknown]
